FAERS Safety Report 9892765 (Version 2)
Quarter: 2014Q2

REPORT INFORMATION
  Report Type: Spontaneous
  Country: US (occurrence: US)
  Receive Date: 20140212
  Receipt Date: 20140430
  Transmission Date: 20141212
  Serious: Yes (Death)
  Sender: FDA-Public Use
  Company Number: US-BRISTOL-MYERS SQUIBB COMPANY-20169785

PATIENT
  Age: 76 Year
  Sex: Male

DRUGS (9)
  1. ABILIFY TABS 10 MG [Suspect]
     Route: 048
  2. PRAVASTATIN SODIUM [Suspect]
  3. CYANOCOBALAMIN [Suspect]
  4. METOPROLOL [Suspect]
  5. NITROFURANTOIN [Suspect]
  6. DIVALPROEX [Suspect]
  7. TRAZODONE HCL [Suspect]
  8. PRADAXA [Suspect]
  9. BACTRIM [Suspect]

REACTIONS (1)
  - Death [Fatal]
